FAERS Safety Report 18098560 (Version 2)
Quarter: 2021Q4

REPORT INFORMATION
  Report Type: Spontaneous
  Country: US (occurrence: US)
  Receive Date: 20200731
  Receipt Date: 20211119
  Transmission Date: 20220303
  Serious: No
  Sender: FDA-Public Use
  Company Number: US-JNJFOC-20200735417

PATIENT
  Age: 25 Year
  Sex: Male
  Weight: 84.898 kg

DRUGS (2)
  1. RISPERDAL [Suspect]
     Active Substance: RISPERIDONE
     Indication: Product used for unknown indication
     Route: 048
     Dates: start: 1997, end: 2013
  2. RISPERIDONE [Suspect]
     Active Substance: RISPERIDONE
     Indication: Product used for unknown indication
     Route: 048
     Dates: start: 1997, end: 2013

REACTIONS (2)
  - Gynaecomastia [Unknown]
  - Emotional disorder [Unknown]

NARRATIVE: CASE EVENT DATE: 20170123
